FAERS Safety Report 8496455 (Version 4)
Quarter: 2013Q3

REPORT INFORMATION
  Report Type: Report from Study
  Country: NO (occurrence: NO)
  Receive Date: 20120405
  Receipt Date: 20130809
  Transmission Date: 20140515
  Serious: Yes (Hospitalization)
  Sender: FDA-Public Use
  Company Number: NO-JNJFOC-20120314170

PATIENT
  Age: 25 Year
  Sex: Male
  Weight: 115 kg

DRUGS (5)
  1. REMICADE [Suspect]
     Indication: COLITIS ULCERATIVE
     Dosage: INITIALLY GIVEN AT 0, 2 AND 6 WEEKS
     Route: 042
     Dates: start: 20100113
  2. REMICADE [Suspect]
     Indication: COLITIS ULCERATIVE
     Dosage: HAD 12 ROUNDS OF INFLIXIMAB
     Route: 042
     Dates: start: 201006, end: 20110530
  3. REMICADE [Suspect]
     Indication: COLITIS ULCERATIVE
     Route: 042
     Dates: start: 2010, end: 2010
  4. IMUREL [Concomitant]
     Indication: COLITIS ULCERATIVE
  5. PREDNISOLONE [Concomitant]
     Indication: COLITIS ULCERATIVE
     Dosage: DOSE REPORTED AS 10-15 MG

REACTIONS (1)
  - Colitis ulcerative [Recovered/Resolved]
